FAERS Safety Report 6167970-5 (Version None)
Quarter: 2009Q2

REPORT INFORMATION
  Report Type: 
  Country: None (occurrence: None)
  Receive Date: 20090423
  Receipt Date: 20090408
  Transmission Date: 20091009
  Serious: Yes (Death, Life-Threatening, Disabling, Other)
  Sender: FDA-Public Use
  Company Number: 2009S1006520

PATIENT
  Age: 55 Year
  Sex: Female

DRUGS (7)
  1. AZATHIOPRINE [Suspect]
     Indication: IMMUNOSUPPRESSION
     Dosage: 100 MG; DAILY ORAL
     Route: 048
     Dates: start: 20020216, end: 20090204
  2. MITOXANTRONE [Suspect]
     Indication: IMMUNOSUPPRESSION
     Dosage: 180 MG; INTRAVENOUS
     Route: 042
     Dates: start: 20010502, end: 20020710
  3. DESMOPRESSIN ACETATE [Concomitant]
  4. DEXAMETHASONE TAB [Concomitant]
  5. FELODIPINE [Concomitant]
  6. LEVOTHYROXINE SODIUM [Concomitant]
  7. RAMIPRIL [Concomitant]

REACTIONS (5)
  - ANOREXIA [None]
  - JAUNDICE [None]
  - MALAISE [None]
  - METASTASES TO LIVER [None]
  - WEIGHT DECREASED [None]
